FAERS Safety Report 9554209 (Version 3)
Quarter: 2013Q4

REPORT INFORMATION
  Report Type: Report from Study
  Country: US (occurrence: US)
  Receive Date: 20130925
  Receipt Date: 20131009
  Transmission Date: 20140711
  Serious: Yes (Other)
  Sender: FDA-Public Use
  Company Number: US-ROCHE-1272582

PATIENT
  Age: 35 Year
  Sex: Female
  Weight: 69.46 kg

DRUGS (10)
  1. OMALIZUMAB [Suspect]
     Indication: ASTHMA
     Dosage: DATE OF MOST RECENT DOSE 04/SEP/2013
     Route: 058
     Dates: start: 20130723
  2. OMALIZUMAB [Suspect]
     Route: 058
     Dates: start: 20130806
  3. OMALIZUMAB [Suspect]
     Route: 058
     Dates: start: 20130820
  4. OMALIZUMAB [Suspect]
     Dosage: DATE OF MOST RECENT DOSE 19/FEB/2013
     Route: 058
     Dates: start: 20130904
  5. OMALIZUMAB [Suspect]
     Dosage: 8 WEEKS PRIOR TO CONCEPTION
     Route: 058
     Dates: start: 20130625
  6. OMALIZUMAB [Suspect]
     Dosage: 8 WEEKS PRIOR TO CONCEPTION
     Route: 058
     Dates: start: 20130709
  7. OMALIZUMAB [Suspect]
     Route: 065
     Dates: start: 20130219
  8. LEVOXYL [Concomitant]
     Indication: HYPERTHYROIDISM
  9. PULMICORT [Concomitant]
     Indication: ASTHMA
  10. ZYRTEC [Concomitant]
     Indication: HYPERSENSITIVITY

REACTIONS (3)
  - Abortion spontaneous [Unknown]
  - Vaginal haemorrhage [Not Recovered/Not Resolved]
  - Exposure during pregnancy [Unknown]
